FAERS Safety Report 8302667 (Version 2)
Quarter: 2013Q4

REPORT INFORMATION
  Report Type: Spontaneous
  Country: US (occurrence: None)
  Receive Date: 20111129
  Receipt Date: 20131226
  Transmission Date: 20140711
  Serious: Yes (Other)
  Sender: FDA-Public Use
  Company Number: PHEH2011US02834

PATIENT
  Age: 5 Year
  Sex: Male

DRUGS (8)
  1. AFINITOR [Suspect]
     Indication: TUBEROUS SCLEROSIS
     Route: 048
     Dates: start: 20110816, end: 20110913
  2. TRILEPTAL [Concomitant]
  3. TOPAMAX [Concomitant]
  4. KEPPRA [Concomitant]
  5. SINGULAIR [Concomitant]
  6. SIMVASTATIN [Concomitant]
  7. GUANFACINE HYDROCHLORIDE [Concomitant]
  8. CLARITIN [Concomitant]

REACTIONS (1)
  - Convulsion [None]
